FAERS Safety Report 9633185 (Version 2)
Quarter: 2013Q4

REPORT INFORMATION
  Report Type: Report from Study
  Country: BR (occurrence: BR)
  Receive Date: 20131020
  Receipt Date: 20131020
  Transmission Date: 20140711
  Serious: Yes (Hospitalization, Other)
  Sender: FDA-Public Use
  Company Number: PHHY2013BR104327

PATIENT
  Sex: Female

DRUGS (7)
  1. DIOVAN AMLO FIX [Suspect]
     Indication: HYPERTENSION
     Dosage: 1 DF, (160 MG VASLA/5 MG AMLO) DAILY
     Route: 048
  2. DIOVAN AMLO FIX [Suspect]
     Dosage: 1 DF, (320MG VASLA/5 MG AMLO) DAILY
     Route: 048
  3. ARADOIS [Suspect]
     Indication: HYPERTENSION
  4. DAFORIN [Concomitant]
     Indication: DEPRESSION
     Dosage: UNK UKN, UNK
     Route: 048
  5. NICORD [Concomitant]
     Indication: HYPERTENSION
     Dosage: 1 DF, (5 MG) DAILY
     Route: 048
  6. RIVOTRIL [Concomitant]
     Indication: INSOMNIA
     Dosage: 10 GTT, (2.5 MG) DAILY
     Route: 048
  7. HYDROMET [Concomitant]
     Indication: HYPERTENSION
     Dosage: 1 DF (320MG METHYLDOPA/UKN HCT), DAILY
     Route: 048

REACTIONS (4)
  - Blood pressure increased [Recovered/Resolved]
  - Vitamin C deficiency [Recovered/Resolved]
  - Blood cholesterol increased [Recovered/Resolved]
  - Gastritis [Recovered/Resolved]
